FAERS Safety Report 4840181-9 (Version None)
Quarter: 2005Q4

REPORT INFORMATION
  Report Type: 
  Country: None (occurrence: None)
  Receive Date: 20051125
  Receipt Date: 20050822
  Transmission Date: 20060501
  Serious: Yes (Hospitalization)
  Sender: FDA-Public Use
  Company Number: 2005BI014350

PATIENT
  Age: 42 Year
  Sex: Female

DRUGS (2)
  1. AVONEX [Suspect]
     Indication: MULTIPLE SCLEROSIS
     Dosage: 30 UG; QW; IM
     Route: 030
     Dates: start: 20000112
  2. PAIN MEDICATION [Concomitant]

REACTIONS (3)
  - CHOLECYSTECTOMY [None]
  - COLLAPSE OF LUNG [None]
  - INTERVERTEBRAL DISC DISORDER [None]
